FAERS Safety Report 11591887 (Version 1)
Quarter: 2015Q4

REPORT INFORMATION
  Report Type: Spontaneous
  Country: CA (occurrence: CA)
  Receive Date: 20151005
  Receipt Date: 20151005
  Transmission Date: 20160304
  Serious: Yes (Other)
  Sender: FDA-Public Use
  Company Number: CA-ROCHE-1641117

PATIENT
  Age: 55 Year
  Sex: Female

DRUGS (7)
  1. XOLAIR [Suspect]
     Active Substance: OMALIZUMAB
     Route: 058
     Dates: start: 20150827
  2. NASONEX [Concomitant]
     Active Substance: MOMETASONE FUROATE
  3. VENTOLIN [Concomitant]
     Active Substance: ALBUTEROL SULFATE
  4. SINGULAIR [Concomitant]
     Active Substance: MONTELUKAST SODIUM
  5. XOLAIR [Suspect]
     Active Substance: OMALIZUMAB
     Indication: ASTHMA
     Route: 058
     Dates: start: 20130702
  6. XOLAIR [Suspect]
     Active Substance: OMALIZUMAB
     Route: 058
     Dates: start: 20150317
  7. DILTIAZEM [Concomitant]
     Active Substance: DILTIAZEM

REACTIONS (15)
  - Pharyngitis [Unknown]
  - Wheezing [Unknown]
  - Sinusitis [Unknown]
  - Injection site pain [Unknown]
  - Skin plaque [Unknown]
  - Productive cough [Unknown]
  - Anxiety [Unknown]
  - Cough [Unknown]
  - Asthma [Not Recovered/Not Resolved]
  - Nasopharyngitis [Unknown]
  - Chest discomfort [Unknown]
  - Insomnia [Unknown]
  - Hypersensitivity [Not Recovered/Not Resolved]
  - Dyspnoea [Unknown]
  - Pruritus [Unknown]

NARRATIVE: CASE EVENT DATE: 20150504
